FAERS Safety Report 6072288-5 (Version None)
Quarter: 2009Q1

REPORT INFORMATION
  Report Type: 
  Country: None (occurrence: None)
  Receive Date: 20090206
  Receipt Date: 20090206
  Transmission Date: 20090719
  Serious: Yes (Other)
  Sender: FDA-Public Use
  Company Number: None

PATIENT
  Age: 74 Year
  Sex: Female
  Weight: 72.5755 kg

DRUGS (1)
  1. LOVAZA [Suspect]
     Indication: BLOOD TRIGLYCERIDES INCREASED
     Dosage: 4 TABLETS 2 A.M./2 P.M. PO
     Route: 048
     Dates: start: 20081010, end: 20090203

REACTIONS (2)
  - PHARYNGEAL ERYTHEMA [None]
  - THROAT IRRITATION [None]
